FAERS Safety Report 5671111-8 (Version None)
Quarter: 2008Q1

REPORT INFORMATION
  Report Type: 
  Country: None (occurrence: None)
  Receive Date: 20080318
  Receipt Date: 20080306
  Transmission Date: 20080703
  Serious: Yes (Other)
  Sender: FDA-Public Use
  Company Number: AU-SANOFI-SYNTHELABO-A01200802745

PATIENT
  Age: 35 Year
  Sex: Male

DRUGS (4)
  1. STILNOX [Suspect]
     Dosage: UNK
     Route: 048
  2. ATACAND [Concomitant]
     Indication: HYPERTENSION
     Dosage: UNK
     Route: 065
  3. MIRTAZAPINE [Concomitant]
     Dosage: UNK
     Route: 065
  4. PROTHIADEN [Concomitant]
     Dosage: UNK
     Route: 065

REACTIONS (6)
  - DRUG INEFFECTIVE [None]
  - EMOTIONAL DISORDER [None]
  - FATIGUE [None]
  - LOSS OF LIBIDO [None]
  - NIGHTMARE [None]
  - PARANOIA [None]
